FAERS Safety Report 12664780 (Version 2)
Quarter: 2016Q3

REPORT INFORMATION
  Report Type: Spontaneous
  Country: NL (occurrence: NL)
  Receive Date: 20160818
  Receipt Date: 20160826
  Transmission Date: 20161109
  Serious: Yes (Hospitalization, Other)
  Sender: FDA-Public Use
  Company Number: PHHY2016NL110909

PATIENT
  Age: 23 Year
  Sex: Male

DRUGS (3)
  1. BACLOFEN. [Suspect]
     Active Substance: BACLOFEN
     Dosage: 2700 MG, UNK
     Route: 065
  2. MIRTAZAPINE. [Suspect]
     Active Substance: MIRTAZAPINE
     Indication: PRODUCT USED FOR UNKNOWN INDICATION
     Dosage: 330 MG, UNK
     Route: 065
  3. BACLOFEN. [Suspect]
     Active Substance: BACLOFEN
     Indication: ALCOHOLISM
     Dosage: 40 MG, TID
     Route: 065

REACTIONS (13)
  - Toxicity to various agents [Unknown]
  - Drug withdrawal syndrome [Unknown]
  - Anxiety [Recovering/Resolving]
  - Delirium [Recovering/Resolving]
  - Psychomotor hyperactivity [Recovering/Resolving]
  - Off label use [Unknown]
  - Respiratory acidosis [Unknown]
  - Respiratory failure [Unknown]
  - Overdose [Unknown]
  - Aggression [Recovered/Resolved]
  - Bradypnoea [Unknown]
  - Hallucination, visual [Recovering/Resolving]
  - Delusion [Recovering/Resolving]
